FAERS Safety Report 4505761-9 (Version None)
Quarter: 2004Q4

REPORT INFORMATION
  Report Type: 
  Country: None (occurrence: None)
  Receive Date: 20041119
  Receipt Date: 20041004
  Transmission Date: 20050328
  Serious: Yes (Hospitalization)
  Sender: FDA-Public Use
  Company Number: 2004JP001793

PATIENT
  Age: 36 Year
  Sex: Male

DRUGS (2)
  1. SAWACILLIN [Suspect]
     Indication: PERIODONTITIS
     Dosage: 250MG THREE TIMES PER DAY
     Route: 048
     Dates: start: 20040507, end: 20040507
  2. DICLOFENAC SODIUM [Concomitant]
     Indication: PERIODONTITIS
     Dosage: 150MG UNKNOWN
     Route: 048
     Dates: start: 20040507

REACTIONS (1)
  - ANAPHYLACTIC SHOCK [None]
